APPROVED DRUG PRODUCT: TACROLIMUS
Active Ingredient: TACROLIMUS
Strength: EQ 1MG BASE
Dosage Form/Route: CAPSULE;ORAL
Application: A090596 | Product #002 | TE Code: AB
Applicant: MYLAN PHARMACEUTICALS INC
Approved: Sep 17, 2010 | RLD: No | RS: No | Type: RX